FAERS Safety Report 11378470 (Version 1)
Quarter: 2015Q3

REPORT INFORMATION
  Report Type: Spontaneous
  Country: US (occurrence: US)
  Receive Date: 20150811
  Receipt Date: 20150811
  Transmission Date: 20151125
  Serious: No
  Sender: FDA-Public Use
  Company Number: US-ELI_LILLY_AND_COMPANY-US201302001339

PATIENT
  Age: 56 Year
  Sex: Male
  Weight: 65.76 kg

DRUGS (12)
  1. HYDROCHLOROTHIAZIDE. [Concomitant]
     Active Substance: HYDROCHLOROTHIAZIDE
     Dosage: 25 MG, QD
  2. TESTOSTERONE. [Concomitant]
     Active Substance: TESTOSTERONE
     Dosage: 60 MG, QD
  3. METFORMIN [Concomitant]
     Active Substance: METFORMIN HYDROCHLORIDE
     Dosage: 500 MG, TID
  4. CIALIS [Suspect]
     Active Substance: TADALAFIL
     Indication: BENIGN PROSTATIC HYPERPLASIA
     Dosage: 20 MG, UNKNOWN
     Route: 048
     Dates: start: 2012
  5. FORTEO [Concomitant]
     Active Substance: TERIPARATIDE
     Dosage: 20 UG, QD
     Dates: start: 20120920
  6. LISINOPRIL. [Concomitant]
     Active Substance: LISINOPRIL
     Dosage: 20 MG, QD
  7. GLIPIZIDE. [Concomitant]
     Active Substance: GLIPIZIDE
     Dosage: 2.5 MG, TID
  8. LUMOSTINE ^MEDAC^ [Concomitant]
     Dosage: 3 MG, PRN
  9. ENTERIC ASPIRIN [Concomitant]
     Active Substance: ASPIRIN
     Dosage: 81 MG, UNKNOWN
  10. CIALIS [Suspect]
     Active Substance: TADALAFIL
     Dosage: 1 DF, WEEKLY (1/W)
     Route: 048
  11. NIASPAN [Concomitant]
     Active Substance: NIACIN
     Dosage: 1 G, EACH EVENING
  12. XANAX [Concomitant]
     Active Substance: ALPRAZOLAM
     Dosage: 125 UG, PRN

REACTIONS (4)
  - Dizziness [Not Recovered/Not Resolved]
  - Proteinuria [Not Recovered/Not Resolved]
  - Wrong technique in product usage process [Unknown]
  - Drug ineffective [Not Recovered/Not Resolved]
